FAERS Safety Report 5688474-X (Version None)
Quarter: 2008Q1

REPORT INFORMATION
  Report Type: 
  Country: None (occurrence: None)
  Receive Date: 20080328
  Receipt Date: 20080328
  Transmission Date: 20080703
  Serious: Yes (Other)
  Sender: FDA-Public Use
  Company Number: None

PATIENT
  Age: 38 Year
  Sex: Female
  Weight: 90.7194 kg

DRUGS (2)
  1. AVELOX [Suspect]
     Indication: PNEUMONIA
     Dosage: 400 MG 1X DAILY PO
     Route: 048
     Dates: start: 20080325, end: 20080325
  2. LEVAQUIN [Suspect]
     Indication: PNEUMONIA
     Dosage: 1X DAILY PO
     Route: 048
     Dates: start: 20080318, end: 20080321

REACTIONS (10)
  - AGITATION [None]
  - ANXIETY [None]
  - DIZZINESS [None]
  - HYPERHIDROSIS [None]
  - HYPOAESTHESIA [None]
  - INSOMNIA [None]
  - NERVOUSNESS [None]
  - PALPITATIONS [None]
  - PARAESTHESIA [None]
  - TREMOR [None]
